FAERS Safety Report 14361193 (Version 1)
Quarter: 2018Q1

REPORT INFORMATION
  Report Type: Spontaneous
  Country: US (occurrence: US)
  Receive Date: 20180107
  Receipt Date: 20180107
  Transmission Date: 20180509
  Serious: No
  Sender: FDA-Public Use
  Company Number: US-AMGEN-USASP2018001112

PATIENT
  Sex: Male

DRUGS (4)
  1. LOSARTAN. [Concomitant]
     Active Substance: LOSARTAN
     Dosage: UNK
  2. METHOTREXATE. [Concomitant]
     Active Substance: METHOTREXATE
     Dosage: UNK (4 TABS EVERY 7 DAYS)
     Route: 065
     Dates: start: 20171216
  3. ENBREL [Suspect]
     Active Substance: ETANERCEPT
     Indication: RHEUMATOID ARTHRITIS
     Dosage: 50 MG, QWK
     Route: 058
     Dates: start: 201711
  4. FOLIC ACID. [Concomitant]
     Active Substance: FOLIC ACID
     Dosage: UNK

REACTIONS (9)
  - Eye irritation [Unknown]
  - Pain [Unknown]
  - Headache [Recovered/Resolved]
  - Ocular hyperaemia [Unknown]
  - Prostatic disorder [Unknown]
  - Secretion discharge [Unknown]
  - Dysuria [Unknown]
  - Sinus congestion [Unknown]
  - Fatigue [Unknown]
